FAERS Safety Report 5056477-4 (Version None)
Quarter: 2006Q2

REPORT INFORMATION
  Report Type: 
  Country: None (occurrence: None)
  Receive Date: 20060616
  Receipt Date: 20060417
  Transmission Date: 20061013
  Serious: Yes (Hospitalization)
  Sender: FDA-Public Use
  Company Number: 200612983US

PATIENT
  Age: 87 Year
  Sex: Male

DRUGS (12)
  1. LANTUS [Suspect]
     Indication: DIABETES MELLITUS NON-INSULIN-DEPENDENT
     Dosage: 17 U
     Dates: start: 20060318
  2. LANTUS [Suspect]
     Indication: DIABETES MELLITUS NON-INSULIN-DEPENDENT
     Dosage: 24 U
  3. LANTUS [Suspect]
     Indication: DIABETES MELLITUS NON-INSULIN-DEPENDENT
     Dosage: 27 IU
  4. LANTUS [Suspect]
     Indication: DIABETES MELLITUS NON-INSULIN-DEPENDENT
     Dosage: 17 IU QAM
     Dates: start: 20060415
  5. OPTICLIK [Suspect]
     Indication: DIABETES MELLITUS NON-INSULIN-DEPENDENT
     Dates: start: 20060318
  6. BLOOD PRESSURE ^WATERS PILL^ NOS [Concomitant]
  7. COUMADIN [Concomitant]
  8. METFORMIN [Concomitant]
  9. COREG [Concomitant]
  10. SPIRONOLACTONE [Concomitant]
  11. RANITIDINE [Concomitant]
  12. LOVASTATIN [Concomitant]

REACTIONS (3)
  - BLOOD GLUCOSE INCREASED [None]
  - HYPERGLYCAEMIA [None]
  - OVERDOSE [None]
